FAERS Safety Report 9164856 (Version 2)
Quarter: 2013Q2

REPORT INFORMATION
  Report Type: Spontaneous
  Country: AU (occurrence: AU)
  Receive Date: 20130315
  Receipt Date: 20130424
  Transmission Date: 20140414
  Serious: Yes (Other)
  Sender: FDA-Public Use
  Company Number: AU-PFIZER INC-2013081034

PATIENT
  Age: 44 Year
  Sex: Male

DRUGS (2)
  1. REVATIO [Suspect]
     Indication: PULMONARY HYPERTENSION
     Dosage: 10 MG, 3X/DAY
     Dates: start: 20121206
  2. REVATIO [Suspect]
     Dosage: 20 MG, 3X/DAY
     Dates: start: 201302

REACTIONS (1)
  - Hypervolaemia [Unknown]
